FAERS Safety Report 9162770 (Version 1)
Quarter: 2013Q1

REPORT INFORMATION
  Report Type: Spontaneous
  Country: US (occurrence: US)
  Receive Date: 20130314
  Receipt Date: 20130314
  Transmission Date: 20140127
  Serious: Yes (Hospitalization, Other)
  Sender: FDA-Public Use
  Company Number: US-SHIRE-ALL1-2013-01335

PATIENT
  Age: 77 Year
  Sex: Male

DRUGS (1)
  1. FOSRENOL [Suspect]
     Indication: RENAL FAILURE CHRONIC
     Dosage: UNK, UNKNOWN
     Route: 048

REACTIONS (3)
  - Bronchial obstruction [Recovered/Resolved]
  - Rectal obstruction [Unknown]
  - Wrong technique in drug usage process [Unknown]
